FAERS Safety Report 4582932-7 (Version None)
Quarter: 2005Q1

REPORT INFORMATION
  Report Type: 
  Country: None (occurrence: None)
  Receive Date: 20050127
  Receipt Date: 20040915
  Transmission Date: 20050727
  Serious: No
  Sender: FDA-Public Use
  Company Number: USA040978380

PATIENT
  Sex: Male

DRUGS (3)
  1. STRATTERA [Suspect]
     Indication: ATTENTION DEFICIT/HYPERACTIVITY DISORDER
     Dosage: 60 MG/2 DAY
  2. LOVASTATIN [Concomitant]
  3. PROPECIA [Concomitant]

REACTIONS (7)
  - ASTHENIA [None]
  - BRADYPHRENIA [None]
  - FATIGUE [None]
  - FEELING ABNORMAL [None]
  - NAUSEA [None]
  - OVERDOSE [None]
  - STOMACH DISCOMFORT [None]
